FAERS Safety Report 19507124 (Version 4)
Quarter: 2021Q4

REPORT INFORMATION
  Report Type: Spontaneous
  Country: NL (occurrence: NL)
  Receive Date: 20210708
  Receipt Date: 20211110
  Transmission Date: 20220303
  Serious: Yes (Other)
  Sender: FDA-Public Use
  Company Number: NL-PFIZER INC-2021764433

PATIENT
  Age: 33 Year
  Sex: Male

DRUGS (1)
  1. TERRA-CORTRIL [Suspect]
     Active Substance: HYDROCORTISONE ACETATE\OXYTETRACYCLINE HYDROCHLORIDE
     Indication: Inflammation
     Dosage: UNK

REACTIONS (13)
  - Myocarditis [Recovered/Resolved]
  - Hypervolaemia [Recovered/Resolved]
  - Inflammation [Recovered/Resolved]
  - Acne [Recovered/Resolved]
  - Infection [Recovered/Resolved]
  - Mobility decreased [Recovered/Resolved]
  - Musculoskeletal discomfort [Recovered/Resolved]
  - Vomiting [Recovered/Resolved]
  - Facial discomfort [Recovered/Resolved]
  - Photophobia [Recovered/Resolved]
  - Off label use [Unknown]
  - Ageusia [Not Recovered/Not Resolved]
  - Feeling abnormal [Not Recovered/Not Resolved]
